FAERS Safety Report 12826824 (Version 1)
Quarter: 2016Q4

REPORT INFORMATION
  Report Type: Spontaneous
  Country: US (occurrence: US)
  Receive Date: 20161006
  Receipt Date: 20161006
  Transmission Date: 20170207
  Serious: No
  Sender: FDA-Public Use
  Company Number: US-INDIVIOR LIMITED-INDV-088052-2016

PATIENT
  Age: 46 Year
  Sex: Female

DRUGS (1)
  1. SUBOXONE [Suspect]
     Active Substance: BUPRENORPHINE HYDROCHLORIDE\NALOXONE HYDROCHLORIDE
     Indication: DRUG DEPENDENCE
     Dosage: DOSE REDUCED BY 1/2 TO 3/4 OF THE STARTING DOSE
     Route: 060
     Dates: start: 2014

REACTIONS (2)
  - Abdominal adhesions [Not Recovered/Not Resolved]
  - Pain [Not Recovered/Not Resolved]
